FAERS Safety Report 11189987 (Version 1)
Quarter: 2015Q2

REPORT INFORMATION
  Report Type: Spontaneous
  Country: US (occurrence: US)
  Receive Date: 20150615
  Receipt Date: 20150615
  Transmission Date: 20150821
  Serious: Yes (Other)
  Sender: FDA-Public Use
  Company Number: US-PFIZER INC-2015197135

PATIENT
  Sex: Female

DRUGS (4)
  1. CHANTIX [Suspect]
     Active Substance: VARENICLINE TARTRATE
     Dosage: UNK
  2. CHANTIX [Suspect]
     Active Substance: VARENICLINE TARTRATE
     Dosage: HALF DF, 1X/DAY
  3. XANAX [Concomitant]
     Active Substance: ALPRAZOLAM
     Indication: ANXIETY
     Dosage: 0.25 MG, 1X/DAY
  4. CHANTIX [Suspect]
     Active Substance: VARENICLINE TARTRATE
     Dosage: HALF DF, 2X/DAY

REACTIONS (5)
  - Condition aggravated [Unknown]
  - Irritable bowel syndrome [Unknown]
  - Swollen tongue [Recovered/Resolved]
  - Intentional product misuse [Unknown]
  - Anxiety [Unknown]

NARRATIVE: CASE EVENT DATE: 2015
